FAERS Safety Report 19089561 (Version 3)
Quarter: 2021Q4

REPORT INFORMATION
  Report Type: Report from Study
  Country: UG (occurrence: UG)
  Receive Date: 20210403
  Receipt Date: 20211228
  Transmission Date: 20220303
  Serious: Yes (Hospitalization, Other)
  Sender: FDA-Public Use
  Company Number: UG-CIPLA LTD.-2021UG02501

PATIENT

DRUGS (4)
  1. LOPINAVIR\RITONAVIR [Suspect]
     Active Substance: LOPINAVIR\RITONAVIR
     Indication: HIV infection
     Dosage: 5 DOSAGE (200/50 MG) FORM
     Route: 048
     Dates: start: 20161019, end: 20161130
  2. COTRIMOXAZOLE [Concomitant]
     Active Substance: SULFAMETHOXAZOLE\TRIMETHOPRIM
     Indication: Antifungal prophylaxis
     Dosage: 5 MILLILITER, BID
     Route: 065
  3. ZINC [Concomitant]
     Active Substance: ZINC
     Indication: Diarrhoea
     Dosage: 20 MILLIGRAM, QD
     Route: 065
  4. NYSTATIN [Concomitant]
     Active Substance: NYSTATIN
     Indication: Oral candidiasis
     Dosage: 5 MILLILITER, BID
     Route: 065

REACTIONS (4)
  - Pneumonia [None]
  - Anaemia [None]
  - Diarrhoea [None]
  - Oral candidiasis [None]

NARRATIVE: CASE EVENT DATE: 20161023
